FAERS Safety Report 4636335-7 (Version None)
Quarter: 2005Q2

REPORT INFORMATION
  Report Type: 
  Country: None (occurrence: None)
  Receive Date: 20050415
  Receipt Date: 20041109
  Transmission Date: 20051028
  Serious: No
  Sender: FDA-Public Use
  Company Number: US-BRISTOL-MYERS SQUIBB COMPANY-12759908

PATIENT
  Age: 60 Year
  Sex: Female
  Weight: 76 kg

DRUGS (8)
  1. CARBOPLATIN [Suspect]
     Indication: FALLOPIAN TUBE CANCER
     Dosage: ADMINISTRATION DATE:  19-JUL-2004, 16-AUG-2004, 13-SEP-2004, AND 09-NOV-2004
     Route: 042
     Dates: start: 20041012, end: 20041012
  2. NEULASTA [Concomitant]
  3. DECADRON [Concomitant]
     Indication: PREMEDICATION
  4. PEPCID [Concomitant]
     Indication: PREMEDICATION
     Route: 042
  5. BENADRYL [Concomitant]
     Indication: PREMEDICATION
     Route: 042
  6. ATIVAN [Concomitant]
     Indication: PREMEDICATION
     Route: 042
  7. ALOXI [Concomitant]
     Indication: PREMEDICATION
     Route: 042
  8. EMEND [Concomitant]
     Indication: PREMEDICATION

REACTIONS (1)
  - DERMATITIS ACNEIFORM [None]
